FAERS Safety Report 20142917 (Version 1)
Quarter: 2021Q4

REPORT INFORMATION
  Report Type: Spontaneous
  Country: US (occurrence: None)
  Receive Date: 20211202
  Receipt Date: 20211202
  Transmission Date: 20220304
  Serious: No
  Sender: FDA-Public Use
  Company Number: US-ROCHE-2711630

PATIENT
  Sex: Female

DRUGS (2)
  1. TAMIFLU [Suspect]
     Active Substance: OSELTAMIVIR PHOSPHATE
     Indication: Influenza
     Dosage: ONGOING: YES FOR 7 DAYS
     Route: 065
  2. TAMIFLU [Suspect]
     Active Substance: OSELTAMIVIR PHOSPHATE
     Indication: Antiviral prophylaxis

REACTIONS (3)
  - Glassy eyes [Not Recovered/Not Resolved]
  - Paraesthesia [Not Recovered/Not Resolved]
  - Periorbital swelling [Not Recovered/Not Resolved]
